FAERS Safety Report 8436682-7 (Version None)
Quarter: 2012Q2

REPORT INFORMATION
  Report Type: 
  Country: None (occurrence: None)
  Receive Date: 20120608
  Receipt Date: 20120608
  Transmission Date: 20120825
  Serious: Yes (Hospitalization)
  Sender: FDA-Public Use
  Company Number: None

PATIENT
  Sex: Male
  Weight: 89.9 kg

DRUGS (1)
  1. RASBURICASE [Suspect]
     Indication: HYPERURICAEMIA
     Dosage: 3MG ONCE IV
     Route: 042
     Dates: start: 20120531

REACTIONS (1)
  - METHAEMOGLOBINAEMIA [None]
